FAERS Safety Report 9528601 (Version 1)
Quarter: 2013Q3

REPORT INFORMATION
  Report Type: Spontaneous
  Country: US (occurrence: US)
  Receive Date: 20130917
  Receipt Date: 20130917
  Transmission Date: 20140515
  Serious: No
  Sender: FDA-Public Use
  Company Number: US-009507513-1308USA010557

PATIENT
  Age: 30 Year
  Sex: Male

DRUGS (3)
  1. ASMANEX TWISTHALER [Suspect]
     Indication: ASTHMA
     Dosage: 2 PUFFS, QD
     Route: 055
     Dates: start: 20130725, end: 20130727
  2. ALBUTEROL [Concomitant]
  3. LAMOTRIGINE [Concomitant]

REACTIONS (1)
  - Drug ineffective [Recovered/Resolved]
